FAERS Safety Report 9424165 (Version 2)
Quarter: 2013Q3

REPORT INFORMATION
  Report Type: Spontaneous
  Country: PL (occurrence: PL)
  Receive Date: 20130729
  Receipt Date: 20130822
  Transmission Date: 20140515
  Serious: Yes (Hospitalization)
  Sender: FDA-Public Use
  Company Number: PL-AMGEN-POLSP2013051753

PATIENT
  Age: 81 Year
  Sex: Male

DRUGS (16)
  1. ARANESP [Suspect]
     Indication: NEPHROGENIC ANAEMIA
     Dosage: 50 MUG, QWK
     Route: 042
  2. ARANESP [Suspect]
     Dosage: 30 MUG, UNK
     Route: 065
  3. ARANESP [Suspect]
     Dosage: 20 MUG, UNK
     Route: 065
  4. FUROSEMIDE                         /00032602/ [Concomitant]
     Indication: DIURETIC THERAPY
     Dosage: 40 MG, BID
     Route: 048
     Dates: start: 20121204
  5. CALPEROS                           /00944201/ [Concomitant]
     Indication: HYPERPARATHYROIDISM SECONDARY
     Dosage: 1 G, TID
     Route: 048
     Dates: start: 20130409
  6. ALFADIOL [Concomitant]
     Indication: HYPERPARATHYROIDISM SECONDARY
     Dosage: 0.25 MG, QD
     Route: 048
     Dates: start: 20130105
  7. APO FINA [Concomitant]
     Indication: BENIGN PROSTATIC HYPERPLASIA
     Dosage: 5 MG, QD
     Route: 048
  8. MILURIT [Concomitant]
     Indication: HYPERURICAEMIA
     Dosage: 100 MG, QD
     Route: 048
     Dates: start: 20130112
  9. FRAXIPARINE                        /01437701/ [Concomitant]
     Indication: ATRIAL FIBRILLATION
     Dosage: 2850 IU, Q4WK
     Route: 058
     Dates: start: 20121213
  10. BETO ZK [Concomitant]
     Indication: ATRIAL FIBRILLATION
     Dosage: 25 MG, BID
     Route: 048
     Dates: start: 20130122
  11. PROPAFENONE                        /00546302/ [Concomitant]
     Indication: ATRIAL FIBRILLATION
     Dosage: 150 MG, BID
     Route: 048
     Dates: start: 20130122
  12. ZOCOR [Concomitant]
     Indication: HYPERCHOLESTEROLAEMIA
     Dosage: 10 MG, QD
     Route: 048
     Dates: start: 20120112
  13. HELICID                            /00661201/ [Concomitant]
     Indication: DYSPEPSIA
     Dosage: 20 MG, QD
     Route: 048
     Dates: start: 20130511
  14. ESTAZOLAM [Concomitant]
     Indication: INSOMNIA
     Dosage: 1 MUG, QD
     Route: 048
     Dates: start: 20130315
  15. AMOTAKS [Concomitant]
     Indication: URINARY TRACT INFECTION
     Dosage: 500 MG, BID
     Route: 048
     Dates: start: 20130522
  16. ACIDUM FOLICUM [Concomitant]
     Indication: ANAEMIA
     Dosage: 15 MG, QD
     Route: 048
     Dates: start: 20130112

REACTIONS (1)
  - Arteriovenous fistula thrombosis [Recovered/Resolved]
